FAERS Safety Report 23636308 (Version 1)
Quarter: 2024Q1

REPORT INFORMATION
  Report Type: Spontaneous
  Country: CN (occurrence: CN)
  Receive Date: 20240315
  Receipt Date: 20240315
  Transmission Date: 20240410
  Serious: Yes (Hospitalization)
  Sender: FDA-Public Use
  Company Number: CN-SHANGHAI JUNSHI BIOSCIENCES CO., LTD.-CN2024009445

PATIENT

DRUGS (2)
  1. TORIPALIMAB [Suspect]
     Active Substance: TORIPALIMAB
     Indication: Nasopharyngeal cancer
     Dosage: 240 MG
     Route: 041
     Dates: start: 20240228, end: 20240228
  2. INDOMETHACIN [Concomitant]
     Active Substance: INDOMETHACIN
     Indication: Symptomatic treatment
     Dosage: 1 PIECE
     Route: 054
     Dates: start: 20240228

REACTIONS (2)
  - Epistaxis [Recovered/Resolved]
  - Vomiting [Recovered/Resolved]

NARRATIVE: CASE EVENT DATE: 20240228
